FAERS Safety Report 9506146 (Version 1)
Quarter: 2013Q1

REPORT INFORMATION
  Report Type: Spontaneous
  Country: US (occurrence: None)
  Receive Date: 20130301
  Receipt Date: 20130301
  Transmission Date: 20140127
  Serious: Yes (Hospitalization, Other)
  Sender: FDA-Public Use
  Company Number: RB-46534-2012

PATIENT
  Age: 24 Month
  Sex: Female

DRUGS (1)
  1. SUBOXONE, 8 MG, BECKIT RICKETT [Suspect]
     Indication: PRODUCT USED FOR UNKNOWN INDICATION

REACTIONS (2)
  - Accidental exposure to product [None]
  - Mydriasis [None]
